FAERS Safety Report 17226087 (Version 1)
Quarter: 2020Q1

REPORT INFORMATION
  Report Type: Spontaneous
  Country: US (occurrence: US)
  Receive Date: 20200102
  Receipt Date: 20200102
  Transmission Date: 20200409
  Serious: Yes (Hospitalization)
  Sender: FDA-Public Use
  Company Number: US-JNJFOC-20200100162

PATIENT
  Age: 61 Year
  Sex: Male

DRUGS (1)
  1. INVOKANA [Suspect]
     Active Substance: CANAGLIFLOZIN
     Indication: PRODUCT USED FOR UNKNOWN INDICATION
     Dosage: 300 MG AND 100 MG
     Route: 048

REACTIONS (3)
  - Foot amputation [Unknown]
  - Osteomyelitis acute [Unknown]
  - Diabetic foot [Unknown]

NARRATIVE: CASE EVENT DATE: 2018
